FAERS Safety Report 15901614 (Version 1)
Quarter: 2019Q1

REPORT INFORMATION
  Report Type: Report from Study
  Country: US (occurrence: US)
  Receive Date: 20190201
  Receipt Date: 20190201
  Transmission Date: 20190417
  Serious: Yes (Other)
  Sender: FDA-Public Use
  Company Number: PHEH2019US003817

PATIENT
  Age: 27 Year
  Sex: Male

DRUGS (1)
  1. COSENTYX [Suspect]
     Active Substance: SECUKINUMAB
     Indication: PRODUCT USED FOR UNKNOWN INDICATION
     Dosage: 300 MG, QMO
     Route: 065
     Dates: start: 20180404

REACTIONS (7)
  - Epilepsy [Unknown]
  - Anxiety [Unknown]
  - Disorientation [Unknown]
  - Dizziness [Unknown]
  - Seizure [Unknown]
  - Panic attack [Unknown]
  - Syncope [Unknown]

NARRATIVE: CASE EVENT DATE: 20190101
